FAERS Safety Report 9107525 (Version 1)
Quarter: 2013Q1

REPORT INFORMATION
  Report Type: Spontaneous
  Country: US (occurrence: US)
  Receive Date: 20130221
  Receipt Date: 20130221
  Transmission Date: 20140127
  Serious: Yes (Other)
  Sender: FDA-Public Use
  Company Number: US-BAYER-2013-019851

PATIENT
  Age: 40 Year
  Sex: Female

DRUGS (8)
  1. DIPHENHYDRAMINE HYDROCHLORIDE [Suspect]
     Indication: PREMEDICATION
     Route: 042
  2. PALONOSETRON [Suspect]
     Indication: PREMEDICATION
     Route: 042
  3. APREPITANT [Suspect]
     Indication: PREMEDICATION
     Route: 048
  4. DEXAMETHASONE [Suspect]
     Indication: PREMEDICATION
     Route: 042
  5. PACLITAXEL [Concomitant]
     Indication: OVARIAN CANCER STAGE III
  6. CARBOPLATIN [Concomitant]
     Indication: OVARIAN CANCER STAGE III
  7. ESTRADIOL [Concomitant]
     Dosage: PATCH, OW
     Route: 062
  8. HYDROCODONE/ACETAMINOPHEN [Concomitant]
     Dosage: UNK UNK, PRN

REACTIONS (2)
  - Anaphylactic reaction [Recovered/Resolved]
  - Urticaria [Recovered/Resolved]
